FAERS Safety Report 15710155 (Version 5)
Quarter: 2020Q2

REPORT INFORMATION
  Report Type: Report from Study
  Country: DE (occurrence: DE)
  Receive Date: 20181211
  Receipt Date: 20200429
  Transmission Date: 20200713
  Serious: Yes (Death, Hospitalization, Other)
  Sender: FDA-Public Use
  Company Number: PHHY2018DE065630

PATIENT
  Sex: Female
  Weight: 50 kg

DRUGS (2)
  1. LETROZOLE. [Suspect]
     Active Substance: LETROZOLE
     Indication: BREAST CANCER METASTATIC
     Dosage: 2.5 MG, QD
     Route: 048
     Dates: start: 20180215, end: 20180912
  2. KISQALI [Suspect]
     Active Substance: RIBOCICLIB
     Indication: BREAST CANCER METASTATIC
     Dosage: 600 MG  (D1.D21.D28)
     Route: 048
     Dates: start: 20180504

REACTIONS (6)
  - Malignant neoplasm progression [Fatal]
  - Neutropenia [Recovered/Resolved]
  - Anaemia [Recovered/Resolved]
  - C-reactive protein increased [Unknown]
  - Breast cancer metastatic [Fatal]
  - Erysipelas [Recovered/Resolved]

NARRATIVE: CASE EVENT DATE: 20180518
